FAERS Safety Report 14570117 (Version 2)
Quarter: 2018Q1

REPORT INFORMATION
  Report Type: Report from Study
  Country: None (occurrence: US)
  Receive Date: 20180225
  Receipt Date: 20180309
  Transmission Date: 20180509
  Serious: Yes (Hospitalization, Other)
  Sender: FDA-Public Use
  Company Number: US-ABBVIE-18K-163-2268828-00

PATIENT
  Age: 30 Year
  Sex: Male
  Weight: 108 kg

DRUGS (8)
  1. HUMIRA [Suspect]
     Active Substance: ADALIMUMAB
     Indication: RHEUMATOID ARTHRITIS
     Route: 058
     Dates: start: 2015, end: 201709
  2. FLURBIPROFEN. [Suspect]
     Active Substance: FLURBIPROFEN
     Indication: RHEUMATOID ARTHRITIS
     Route: 065
     Dates: start: 201711
  3. MARIJUANA [Concomitant]
     Active Substance: CANNABIS SATIVA SUBSP. INDICA TOP
     Indication: PRODUCT USED FOR UNKNOWN INDICATION
  4. PREDNISONE. [Suspect]
     Active Substance: PREDNISONE
     Indication: HAEMOLYTIC ANAEMIA
     Route: 065
     Dates: start: 20171129
  5. ACYCLOVIR. [Concomitant]
     Active Substance: ACYCLOVIR
     Indication: ORAL HERPES
  6. HUMIRA [Suspect]
     Active Substance: ADALIMUMAB
     Route: 058
     Dates: start: 201711, end: 201711
  7. HUMIRA [Suspect]
     Active Substance: ADALIMUMAB
     Route: 058
     Dates: start: 201710, end: 201710
  8. FOLIC ACID. [Concomitant]
     Active Substance: FOLIC ACID
     Indication: SUPPLEMENTATION THERAPY

REACTIONS (11)
  - Gastroenteritis viral [Unknown]
  - Jaundice [Recovered/Resolved]
  - Acquired gene mutation [Not Recovered/Not Resolved]
  - Lethargy [Recovered/Resolved]
  - Haemolytic anaemia [Recovering/Resolving]
  - Insomnia [Not Recovered/Not Resolved]
  - Pain [Recovered/Resolved]
  - Psoriasis [Not Recovered/Not Resolved]
  - Drug specific antibody present [Not Recovered/Not Resolved]
  - Dehydration [Recovered/Resolved]
  - Infectious mononucleosis [Recovering/Resolving]

NARRATIVE: CASE EVENT DATE: 201711
